FAERS Safety Report 19078965 (Version 1)
Quarter: 2021Q1

REPORT INFORMATION
  Report Type: Spontaneous
  Country: HU (occurrence: HU)
  Receive Date: 20210331
  Receipt Date: 20210331
  Transmission Date: 20210420
  Serious: Yes (Other)
  Sender: FDA-Public Use
  Company Number: NVSC2021HU071279

PATIENT
  Age: 58 Year
  Sex: Male

DRUGS (17)
  1. CYTOSAR [Concomitant]
     Active Substance: CYTARABINE
     Dosage: UNK
     Route: 065
     Dates: start: 2005
  2. NILOTINIB [Suspect]
     Active Substance: NILOTINIB
     Indication: PRODUCT USED FOR UNKNOWN INDICATION
     Dosage: UNK
     Route: 065
  3. INTERFERON BETA?1B [Suspect]
     Active Substance: INTERFERON BETA-1B
     Dosage: UNK, QD (3 MU)
     Route: 065
  4. CYTOSAR [Concomitant]
     Active Substance: CYTARABINE
     Dosage: 100 MG, QD
     Route: 065
     Dates: start: 2002, end: 2002
  5. CYTOSAR [Concomitant]
     Active Substance: CYTARABINE
     Dosage: UNK
     Route: 065
     Dates: start: 200603
  6. LITALIR [Concomitant]
     Active Substance: HYDROXYUREA
     Indication: PRODUCT USED FOR UNKNOWN INDICATION
     Dosage: 4 DF
     Route: 065
     Dates: start: 2002, end: 2002
  7. INTERFERON BETA?1B [Suspect]
     Active Substance: INTERFERON BETA-1B
     Dosage: UNK
     Route: 065
     Dates: start: 200902
  8. CYTOSAR [Concomitant]
     Active Substance: CYTARABINE
     Dosage: 100 MG
     Route: 058
  9. NILOTINIB [Suspect]
     Active Substance: NILOTINIB
     Dosage: UNK
     Route: 065
     Dates: start: 200607
  10. CYTOSAR [Concomitant]
     Active Substance: CYTARABINE
     Dosage: 100 MG, QD
     Route: 058
  11. LITALIR [Concomitant]
     Active Substance: HYDROXYUREA
     Dosage: 3 DF, QD
     Route: 065
     Dates: start: 20020610
  12. INTERFERON BETA?1B [Suspect]
     Active Substance: INTERFERON BETA-1B
     Indication: PRODUCT USED FOR UNKNOWN INDICATION
     Dosage: UNK UNK, QD (3 MU)
     Route: 065
  13. CYTOSAR [Concomitant]
     Active Substance: CYTARABINE
     Indication: WHITE BLOOD CELL COUNT INCREASED
     Dosage: 600 MG
     Route: 048
     Dates: start: 20010625, end: 20020404
  14. DASATINIB. [Concomitant]
     Active Substance: DASATINIB
     Indication: PRODUCT USED FOR UNKNOWN INDICATION
     Dosage: 100 MG
     Route: 065
  15. DALACIN [Concomitant]
     Active Substance: CLINDAMYCIN
     Indication: PRODUCT USED FOR UNKNOWN INDICATION
     Dosage: UNK
     Route: 065
     Dates: start: 2002
  16. CYTOSAR [Concomitant]
     Active Substance: CYTARABINE
     Dosage: 100 MG, QD
     Route: 065
     Dates: start: 200209, end: 2002
  17. LITALIR [Concomitant]
     Active Substance: HYDROXYUREA
     Dosage: 6 DF, QD
     Route: 065
     Dates: start: 200209

REACTIONS (3)
  - Fluorescent in situ hybridisation [Unknown]
  - Vascular stenosis [Unknown]
  - Product use in unapproved indication [Unknown]

NARRATIVE: CASE EVENT DATE: 201202
